FAERS Safety Report 8394927-6 (Version None)
Quarter: 2012Q2

REPORT INFORMATION
  Report Type: 
  Country: None (occurrence: None)
  Receive Date: 20120530
  Receipt Date: 20110801
  Transmission Date: 20120825
  Serious: No
  Sender: FDA-Public Use
  Company Number: US-GLAXOSMITHKLINE-A0940162A

PATIENT
  Age: 47 Year
  Sex: Female
  Weight: 87 kg

DRUGS (13)
  1. LORTAB [Concomitant]
     Dosage: 1TAB AS REQUIRED
  2. POTASSIUM CHLORIDE [Concomitant]
     Dosage: 60MEQ TWICE PER DAY
  3. FERROUS SULFATE TAB [Concomitant]
     Dosage: 325MG AS DIRECTED
  4. ASPIRIN [Concomitant]
  5. SYNTHROID [Concomitant]
     Dosage: 112MCG PER DAY
  6. LASIX [Concomitant]
     Dosage: 120MG TWICE PER DAY
  7. FLOLAN [Suspect]
     Indication: PULMONARY ARTERIAL HYPERTENSION
     Dosage: 29NGKM SEE DOSAGE TEXT
     Route: 042
     Dates: start: 19971201
  8. TRACLEER [Concomitant]
     Dosage: 125MG TWICE PER DAY
  9. ALBUTEROL [Concomitant]
  10. LORAZEPAM [Concomitant]
  11. SPIRONOLACTONE [Concomitant]
     Dosage: 100MG TWICE PER DAY
  12. OXYGEN [Concomitant]
  13. ZITHROMAX [Concomitant]

REACTIONS (2)
  - DYSPNOEA [None]
  - DEVICE RELATED INFECTION [None]
